FAERS Safety Report 9000018 (Version 1)
Quarter: 2013Q1

REPORT INFORMATION
  Report Type: Spontaneous
  Country: US (occurrence: US)
  Receive Date: 20130102
  Receipt Date: 20130102
  Transmission Date: 20140127
  Serious: Yes (Other)
  Sender: FDA-Public Use
  Company Number: US-PFIZER INC-2013000009

PATIENT
  Sex: Female

DRUGS (2)
  1. EFFEXOR XR [Suspect]
     Dosage: 225 MG, UNK
  2. EFFEXOR XR [Suspect]
     Dosage: 150 MG, UNK

REACTIONS (1)
  - Bipolar disorder [Unknown]
